FAERS Safety Report 16322608 (Version 1)
Quarter: 2019Q2

REPORT INFORMATION
  Report Type: Spontaneous
  Country: TR (occurrence: TR)
  Receive Date: 20190516
  Receipt Date: 20190516
  Transmission Date: 20190711
  Serious: Yes (Other)
  Sender: FDA-Public Use
  Company Number: TR-BAUSCH-BL-2019-013030

PATIENT
  Age: 45 Year
  Sex: Female

DRUGS (3)
  1. TOBRASED [Concomitant]
     Indication: CONJUNCTIVITIS
     Route: 047
     Dates: start: 2019, end: 2019
  2. ZYLET [Suspect]
     Active Substance: LOTEPREDNOL ETABONATE\TOBRAMYCIN
     Indication: CONJUNCTIVITIS
     Route: 047
     Dates: start: 2019, end: 2019
  3. NEVANAC [Concomitant]
     Active Substance: NEPAFENAC
     Indication: CONJUNCTIVITIS
     Route: 047
     Dates: start: 2019, end: 2019

REACTIONS (2)
  - Dacryostenosis acquired [Not Recovered/Not Resolved]
  - Drug ineffective [Unknown]

NARRATIVE: CASE EVENT DATE: 2019
